FAERS Safety Report 5022411-6 (Version None)
Quarter: 2006Q2

REPORT INFORMATION
  Report Type: 
  Country: None (occurrence: None)
  Receive Date: 20060605
  Receipt Date: 20060525
  Transmission Date: 20061013
  Serious: Yes (Hospitalization, Other)
  Sender: FDA-Public Use
  Company Number: 2006034491

PATIENT
  Age: 80 Year
  Sex: Female

DRUGS (5)
  1. LYRICA [Suspect]
     Indication: POST HERPETIC NEURALGIA
     Dosage: 375 MG (75 MG, 5 IN 1 D), ORAL
     Route: 048
     Dates: start: 20060101
  2. AMITRIPTYLINE HCL [Suspect]
     Indication: POST HERPETIC NEURALGIA
     Dosage: 100 MG (100 MG, 1 IN 1 D), ORAL
     Route: 048
     Dates: start: 20060227
  3. TRICYCLIC ANTIDEPRESSANTS (TRICYCLIC ANTIDEPRESSANTS) [Concomitant]
  4. ACETAMINOPHEN [Concomitant]
  5. ENDONE (OXYCODONE HYDROCHLORIDE) [Concomitant]

REACTIONS (6)
  - ABNORMAL BEHAVIOUR [None]
  - BALANCE DISORDER [None]
  - DELIRIUM [None]
  - DIZZINESS [None]
  - DYSARTHRIA [None]
  - RESTLESSNESS [None]
